FAERS Safety Report 5488258-1 (Version None)
Quarter: 2007Q4

REPORT INFORMATION
  Report Type: 
  Country: None (occurrence: None)
  Receive Date: 20071017
  Receipt Date: 20071005
  Transmission Date: 20080405
  Serious: Yes (Hospitalization)
  Sender: FDA-Public Use
  Company Number: HQWYE764425JUN07

PATIENT
  Age: 62 Year
  Sex: Male

DRUGS (3)
  1. INIPOMP [Suspect]
     Indication: GASTRIC HAEMORRHAGE
     Route: 048
     Dates: start: 20070501, end: 20070510
  2. PLAVIX [Concomitant]
     Dosage: DOSE FORM
     Route: 048
  3. PRAVASTATIN [Concomitant]
     Dosage: DOSE FORM
     Route: 048

REACTIONS (5)
  - ANAPHYLACTIC SHOCK [None]
  - ARTHRITIS ALLERGIC [None]
  - ARTHRITIS INFECTIVE [None]
  - CONDITION AGGRAVATED [None]
  - MUSCULOSKELETAL PAIN [None]
